FAERS Safety Report 18460278 (Version 1)
Quarter: 2020Q4

REPORT INFORMATION
  Report Type: Report from Study
  Country: US (occurrence: US)
  Receive Date: 20201103
  Receipt Date: 20201103
  Transmission Date: 20210114
  Serious: Yes (Life-Threatening, Hospitalization)
  Sender: FDA-Public Use
  Company Number: US-FERAPHARMA-2020-US-022178

PATIENT
  Age: 49 Year
  Sex: Male
  Weight: 68.8 kg

DRUGS (3)
  1. DECADRON [Suspect]
     Active Substance: DEXAMETHASONE
     Indication: PREOPERATIVE CARE
     Dosage: 4 MG Q6H/2 MG Q6H/1 MG Q2H/1 MG QD
     Route: 048
     Dates: start: 20161222
  2. DILAUDID [Concomitant]
     Active Substance: HYDROMORPHONE HYDROCHLORIDE
     Route: 065
     Dates: start: 20161205
  3. MS CONTIN [Concomitant]
     Active Substance: MORPHINE SULFATE
     Route: 065
     Dates: start: 20161205

REACTIONS (2)
  - Urine output decreased [Unknown]
  - Tumour lysis syndrome [Recovering/Resolving]

NARRATIVE: CASE EVENT DATE: 20161223
